FAERS Safety Report 10275607 (Version 5)
Quarter: 2015Q3

REPORT INFORMATION
  Report Type: Report from Study
  Country: PT (occurrence: PT)
  Receive Date: 20140703
  Receipt Date: 20150814
  Transmission Date: 20151125
  Serious: Yes (Death, Hospitalization)
  Sender: FDA-Public Use
  Company Number: PT-ROCHE-1417127

PATIENT
  Age: 68 Year
  Sex: Male
  Weight: 63 kg

DRUGS (4)
  1. BEVACIZUMAB [Suspect]
     Active Substance: BEVACIZUMAB
     Indication: COLORECTAL CANCER METASTATIC
     Dosage: LAST DOSE PRIOR TO SAE 20/MAY/2014
     Route: 065
     Dates: start: 20130116
  2. 5-FU [Suspect]
     Active Substance: FLUOROURACIL
     Indication: COLORECTAL CANCER METASTATIC
     Dosage: MOST RECENT DOSE PRIOR TO ADVERSE EVENT: 20/MAY/2014
     Route: 040
     Dates: start: 20130116
  3. LEUCOVORIN. [Suspect]
     Active Substance: LEUCOVORIN
     Indication: COLORECTAL CANCER METASTATIC
     Dosage: MOST RECENT DOSE PRIOR TO ADVERSE EVENT: 20/MAY/2014
     Route: 065
     Dates: start: 20130116
  4. 5-FU [Suspect]
     Active Substance: FLUOROURACIL
     Dosage: MOST RECENT DOSE PRIOR TO ADVERSE EVENT: 20/MAY/2014
     Route: 042
     Dates: start: 20130116

REACTIONS (1)
  - Ischaemic hepatitis [Fatal]

NARRATIVE: CASE EVENT DATE: 20140530
